FAERS Safety Report 9303561 (Version 2)
Quarter: 2013Q2

REPORT INFORMATION
  Report Type: Spontaneous
  Country: JP (occurrence: JP)
  Receive Date: 20130522
  Receipt Date: 20130531
  Transmission Date: 20140414
  Serious: Yes (Other)
  Sender: FDA-Public Use
  Company Number: JP-ALEXION-A201301168

PATIENT
  Age: 27 Year
  Sex: Female

DRUGS (4)
  1. SOLIRIS 300MG [Suspect]
     Indication: PAROXYSMAL NOCTURNAL HAEMOGLOBINURIA
     Dosage: 600 MG, QW X 4
     Route: 042
     Dates: start: 20100913
  2. SOLIRIS 300MG [Suspect]
     Dosage: 900 MG, SINGLE
     Route: 042
     Dates: start: 2010, end: 2010
  3. SOLIRIS 300MG [Suspect]
     Dosage: 900 MG, Q2W
     Route: 042
     Dates: start: 2010
  4. PREDNISOLONE [Concomitant]
     Dosage: 10 MG, QD
     Dates: start: 20100913, end: 201108

REACTIONS (6)
  - Intravascular haemolysis [Unknown]
  - Extravascular haemolysis [Unknown]
  - Reticulocyte count increased [Unknown]
  - Blood bilirubin increased [Unknown]
  - Haptoglobin decreased [Unknown]
  - Viral infection [Recovered/Resolved]
